FAERS Safety Report 8586832-7 (Version None)
Quarter: 2012Q3

REPORT INFORMATION
  Report Type: 
  Country: None (occurrence: None)
  Receive Date: 20120810
  Receipt Date: 20120731
  Transmission Date: 20120928
  Serious: No
  Sender: FDA-Public Use
  Company Number: US-009507513-2012SP036525

PATIENT

DRUGS (2)
  1. CLARITIN [Suspect]
     Indication: SINUS DISORDER
     Dosage: UNK UNK, QAM
     Route: 048
     Dates: start: 20120620, end: 20120621
  2. CLARITIN [Suspect]
     Indication: MEDICAL OBSERVATION
     Dosage: 10 MG, QD
     Route: 048
     Dates: start: 20120501, end: 20120601

REACTIONS (2)
  - DIARRHOEA [None]
  - DRUG INEFFECTIVE [None]
